FAERS Safety Report 4297706-4 (Version None)
Quarter: 2004Q1

REPORT INFORMATION
  Report Type: 
  Country: None (occurrence: None)
  Receive Date: 20040126
  Receipt Date: 20031126
  Transmission Date: 20041129
  Serious: No
  Sender: FDA-Public Use
  Company Number: USA030947700

PATIENT
  Age: 48 Year
  Sex: Female
  Weight: 52 kg

DRUGS (2)
  1. STRATTERA [Suspect]
     Indication: ATTENTION DEFICIT/HYPERACTIVITY DISORDER
     Dosage: 60 MG/2 DAY
  2. THYROID TAB [Concomitant]

REACTIONS (7)
  - DIZZINESS [None]
  - DRUG EFFECT DECREASED [None]
  - ENERGY INCREASED [None]
  - INSOMNIA [None]
  - NAUSEA [None]
  - PRESCRIBED OVERDOSE [None]
  - TREMOR [None]
